FAERS Safety Report 4867465-2 (Version None)
Quarter: 2005Q4

REPORT INFORMATION
  Report Type: 
  Country: None (occurrence: None)
  Receive Date: 20051228
  Receipt Date: 20051220
  Transmission Date: 20060501
  Serious: Yes (Other)
  Sender: FDA-Public Use
  Company Number: 2005UW19200

PATIENT
  Age: 67 Year
  Sex: Male
  Weight: 71.2 kg

DRUGS (1)
  1. NEXIUM [Suspect]
     Indication: DYSPEPSIA
     Route: 048
     Dates: start: 20030101

REACTIONS (12)
  - ABDOMINAL PAIN [None]
  - BENIGN BREAST NEOPLASM [None]
  - BREAST PAIN [None]
  - BREAST SWELLING [None]
  - CLOSTRIDIUM COLITIS [None]
  - ENDOCARDITIS [None]
  - HAEMATOCHEZIA [None]
  - HYPOTENSION [None]
  - PAIN IN EXTREMITY [None]
  - PNEUMONIA [None]
  - POLYP [None]
  - PYREXIA [None]
